FAERS Safety Report 15723567 (Version 1)
Quarter: 2018Q4

REPORT INFORMATION
  Report Type: Spontaneous
  Country: US (occurrence: US)
  Receive Date: 20181214
  Receipt Date: 20181214
  Transmission Date: 20190205
  Serious: Yes (Hospitalization)
  Sender: FDA-Public Use
  Company Number: US-PFIZER INC-2018512922

PATIENT
  Age: 65 Year
  Sex: Female
  Weight: 68.48 kg

DRUGS (1)
  1. IBRANCE [Suspect]
     Active Substance: PALBOCICLIB
     Indication: BREAST CANCER METASTATIC
     Dosage: 125 MG, CYCLIC(D1-21 Q28 DAYS )
     Route: 048
     Dates: start: 201709, end: 201710

REACTIONS (2)
  - Diverticulitis [Unknown]
  - Fistula [Unknown]
